FAERS Safety Report 8824996 (Version 1)
Quarter: 2012Q4

REPORT INFORMATION
  Report Type: 
  Country: FR (occurrence: FR)
  Receive Date: 20121004
  Receipt Date: 20121004
  Transmission Date: 20130627
  Serious: Yes (Hospitalization)
  Sender: FDA-Public Use
  Company Number: FR-JNJFOC-20121002606

PATIENT
  Age: 68 Year
  Sex: Male

DRUGS (5)
  1. XARELTO [Suspect]
     Indication: THROMBOSIS PROPHYLAXIS
     Route: 048
     Dates: start: 20120608, end: 20120620
  2. XARELTO [Suspect]
     Indication: HIP ARTHROPLASTY
     Route: 048
     Dates: start: 20120608, end: 20120620
  3. LOVENOX [Concomitant]
  4. SEVIKAR [Concomitant]
     Route: 048
  5. GLUCOR [Concomitant]
     Route: 048

REACTIONS (1)
  - Thrombocytosis [Recovered/Resolved]
